FAERS Safety Report 10598464 (Version 1)
Quarter: 2014Q4

REPORT INFORMATION
  Report Type: Spontaneous
  Country: GB (occurrence: GB)
  Receive Date: 20141121
  Receipt Date: 20141121
  Transmission Date: 20150529
  Serious: Yes (Other)
  Sender: FDA-Public Use
  Company Number: GB-WATSON-2014-24803

PATIENT
  Age: 66 Year
  Sex: Female

DRUGS (2)
  1. AMLODIPINE BESYLATE. [Suspect]
     Active Substance: AMLODIPINE BESYLATE
     Indication: HYPERTENSION
     Dosage: 1 DF DAILY (5 MG ONCE DAILY)
     Route: 048
  2. TENSAID [Concomitant]
     Indication: PRODUCT USED FOR UNKNOWN INDICATION
     Dosage: 1.5 MG  UNK, TENSAID  XL
     Route: 065

REACTIONS (5)
  - Hypersensitivity [Recovering/Resolving]
  - Lip swelling [Recovering/Resolving]
  - Eye pruritus [Recovering/Resolving]
  - Somnolence [Recovering/Resolving]
  - Eyelid oedema [Recovering/Resolving]
